FAERS Safety Report 13636234 (Version 1)
Quarter: 2017Q2

REPORT INFORMATION
  Report Type: Spontaneous
  Country: US (occurrence: US)
  Receive Date: 20170531
  Receipt Date: 20170531
  Transmission Date: 20170830
  Serious: No
  Sender: FDA-Public Use
  Company Number: US-ASTELLAS-1797692

PATIENT
  Sex: Male

DRUGS (4)
  1. AZITHROMYCIN ANHYDROUS. [Concomitant]
     Active Substance: AZITHROMYCIN ANHYDROUS
  2. GUAIFENESIN/CODEINE [Concomitant]
     Active Substance: CODEINE PHOSPHATE\GUAIFENESIN
     Route: 065
  3. TARCEVA [Suspect]
     Active Substance: ERLOTINIB HYDROCHLORIDE
     Route: 048
  4. TARCEVA [Suspect]
     Active Substance: ERLOTINIB HYDROCHLORIDE
     Indication: MALIGNANT NEOPLASM OF UNKNOWN PRIMARY SITE
     Route: 048
     Dates: start: 20160719

REACTIONS (21)
  - Rash [Unknown]
  - Ill-defined disorder [Unknown]
  - Pain of skin [Unknown]
  - Abdominal pain upper [Unknown]
  - Axillary pain [Unknown]
  - Diarrhoea [Unknown]
  - Vasodilatation [Unknown]
  - Peripheral swelling [Unknown]
  - Acne [Unknown]
  - Swelling face [Unknown]
  - Vision blurred [Unknown]
  - Nausea [Unknown]
  - Blood iron decreased [Unknown]
  - Urticaria [Unknown]
  - Malaise [Unknown]
  - Erythema [Unknown]
  - Back pain [Unknown]
  - Skin exfoliation [Unknown]
  - Hordeolum [Unknown]
  - Weight increased [Unknown]
  - Blister [Unknown]
